FAERS Safety Report 23320056 (Version 1)
Quarter: 2023Q4

REPORT INFORMATION
  Report Type: Other
  Country: CO (occurrence: CO)
  Receive Date: 20231220
  Receipt Date: 20231220
  Transmission Date: 20240110
  Serious: Yes (Hospitalization)
  Sender: FDA-Public Use
  Company Number: CO-002147023-NVSC2020CO271987

PATIENT
  Age: 13 Year
  Sex: Female
  Weight: 29 kg

DRUGS (4)
  1. XOLAIR [Suspect]
     Active Substance: OMALIZUMAB
     Indication: Asthma
     Dosage: 200 MG, Q2W (THAT WAS ONE OF 75 MG)
     Route: 058
     Dates: start: 2019, end: 20230525
  2. XOLAIR [Suspect]
     Active Substance: OMALIZUMAB
     Dosage: 225 MG, Q2W, APPROXIMATELY 1 YEAR AGO
     Route: 058
     Dates: start: 2020, end: 202306
  3. MONTELUKAST [Suspect]
     Active Substance: MONTELUKAST SODIUM
     Indication: Asthma
     Dosage: 5 MG, QD
     Route: 048
  4. FLUTICASONE [Concomitant]
     Active Substance: FLUTICASONE
     Indication: Asthma
     Dosage: 1 DOSAGE FORM PUFF, EVERY 12 HOURS

REACTIONS (6)
  - Asthmatic crisis [Not Recovered/Not Resolved]
  - COVID-19 [Unknown]
  - Illness [Unknown]
  - Ovarian cyst [Unknown]
  - Ear infection [Unknown]
  - Drug ineffective [Unknown]

NARRATIVE: CASE EVENT DATE: 20230601
